FAERS Safety Report 7313257-4 (Version None)
Quarter: 2011Q1

REPORT INFORMATION
  Report Type: 
  Country: None (occurrence: None)
  Receive Date: 20110215
  Receipt Date: 20110215
  Transmission Date: 20110831
  Serious: Yes (Hospitalization)
  Sender: FDA-Public Use
  Company Number: None

PATIENT
  Sex: Male
  Weight: 83.5 kg

DRUGS (8)
  1. QUADRAMET [Suspect]
     Dosage: 86.9 MCI
  2. LOTREL [Concomitant]
  3. VITAMIN D [Suspect]
     Dosage: 400 IU
  4. CALCIUM CARBONATE [Suspect]
     Dosage: 600 MG
  5. ZOMETA [Suspect]
     Dosage: 4 MG
  6. SIMVASTATIN [Concomitant]
  7. LEVOTHROID [Concomitant]
  8. ASPIRIN [Concomitant]

REACTIONS (6)
  - THROMBOCYTOPENIA [None]
  - RENAL FAILURE ACUTE [None]
  - FEMUR FRACTURE [None]
  - MALAISE [None]
  - FATIGUE [None]
  - OBSTRUCTION [None]
